FAERS Safety Report 10753855 (Version 1)
Quarter: 2015Q1

REPORT INFORMATION
  Report Type: Spontaneous
  Country: US (occurrence: None)
  Receive Date: 20150129
  Receipt Date: 20150129
  Transmission Date: 20150721
  Serious: Yes (Other)
  Sender: FDA-Public Use
  Company Number: None

PATIENT
  Age: 53 Year
  Sex: Male
  Weight: 81.65 kg

DRUGS (3)
  1. DEXILANT [Suspect]
     Active Substance: DEXLANSOPRAZOLE
     Indication: CHEST PAIN
     Route: 048
     Dates: start: 20120601, end: 20141107
  2. DEXILANT [Suspect]
     Active Substance: DEXLANSOPRAZOLE
     Indication: GASTROOESOPHAGEAL REFLUX DISEASE
     Route: 048
     Dates: start: 20120601, end: 20141107
  3. DEXILANT [Suspect]
     Active Substance: DEXLANSOPRAZOLE
     Indication: CARDIAC DISORDER
     Route: 048
     Dates: start: 20120601, end: 20141107

REACTIONS (3)
  - Intraocular pressure increased [None]
  - Overdose [None]
  - Ocular discomfort [None]

NARRATIVE: CASE EVENT DATE: 20141212
